FAERS Safety Report 7936456-7 (Version None)
Quarter: 2011Q4

REPORT INFORMATION
  Report Type: 
  Country: None (occurrence: None)
  Receive Date: 20111123
  Receipt Date: 20111114
  Transmission Date: 20120403
  Serious: Yes (Congenital Anomaly)
  Sender: FDA-Public Use
  Company Number: DE-TEVA-309149GER

PATIENT

DRUGS (2)
  1. CITALOPRAM HYDROBROMIDE [Suspect]
     Route: 064
  2. FOLSAURE [Concomitant]
     Route: 064

REACTIONS (2)
  - RENAL DYSPLASIA [None]
  - SYMPODIA [None]
